FAERS Safety Report 13795116 (Version 1)
Quarter: 2017Q3

REPORT INFORMATION
  Report Type: Spontaneous
  Country: CA (occurrence: CA)
  Receive Date: 20170726
  Receipt Date: 20170726
  Transmission Date: 20171127
  Serious: Yes (Hospitalization)
  Sender: FDA-Public Use
  Company Number: CA-PFIZER INC-2017283182

PATIENT
  Age: 74 Year
  Sex: Male

DRUGS (4)
  1. ADVIL PM [Suspect]
     Active Substance: DIPHENHYDRAMINE CITRATE\IBUPROFEN
     Indication: NECK PAIN
     Dosage: 2X 200 MG, UNK
  2. ADVIL [Suspect]
     Active Substance: IBUPROFEN
     Dosage: 8X 200 MG, UNK
  3. ADVIL [Suspect]
     Active Substance: IBUPROFEN
     Indication: NECK PAIN
     Dosage: 400 MG, 3X/DAY (6 TO 8 HOURS APART )
  4. ADVIL [Suspect]
     Active Substance: IBUPROFEN
     Dosage: 4X 200 MG, DAILY

REACTIONS (2)
  - Diarrhoea [Recovered/Resolved]
  - Abdominal pain [Recovered/Resolved]

NARRATIVE: CASE EVENT DATE: 20170616
